FAERS Safety Report 11835397 (Version 1)
Quarter: 2015Q4

REPORT INFORMATION
  Report Type: Spontaneous
  Country: US (occurrence: US)
  Receive Date: 20151215
  Receipt Date: 20151215
  Transmission Date: 20160305
  Serious: No
  Sender: FDA-Public Use
  Company Number: ZYD-15-AE-116

PATIENT
  Age: 73 Year
  Sex: Female

DRUGS (8)
  1. BRIMONIDINE TARTRATE/TIMOLOL MALEATE [Concomitant]
  2. AMLODIPINE [Concomitant]
     Active Substance: AMLODIPINE BESYLATE
  3. ATENOLOL. [Concomitant]
     Active Substance: ATENOLOL
  4. HYDROCHLOROTHIAZIDE. [Concomitant]
     Active Substance: HYDROCHLOROTHIAZIDE
  5. LOSARTAN. [Suspect]
     Active Substance: LOSARTAN
     Indication: HYPERTENSION
     Dosage: 50MG-ONCE DAILY-ORAL
     Route: 048
     Dates: start: 20141207, end: 20150114
  6. ESOMEPRAZOLE [Concomitant]
     Active Substance: ESOMEPRAZOLE
  7. PARACETAMOL [Concomitant]
     Active Substance: ACETAMINOPHEN
  8. TRIAMTERENE. [Concomitant]
     Active Substance: TRIAMTERENE

REACTIONS (4)
  - Peripheral swelling [Unknown]
  - Headache [Unknown]
  - Joint swelling [Unknown]
  - Oral candidiasis [Unknown]

NARRATIVE: CASE EVENT DATE: 201412
